FAERS Safety Report 24156406 (Version 2)
Quarter: 2025Q1

REPORT INFORMATION
  Report Type: Spontaneous
  Country: PT (occurrence: PT)
  Receive Date: 20240731
  Receipt Date: 20250311
  Transmission Date: 20250409
  Serious: Yes (Other)
  Sender: PFIZER
  Company Number: None

PATIENT
  Age: 33 Year
  Sex: Female

DRUGS (1)
  1. RIMEGEPANT [Suspect]
     Active Substance: RIMEGEPANT
     Indication: Migraine prophylaxis
     Dosage: 75 MG EVERY OTHER DAY
     Route: 048
     Dates: start: 20240528

REACTIONS (4)
  - Dermatitis allergic [Recovered/Resolved]
  - Confusional state [Recovering/Resolving]
  - Amnesia [Recovering/Resolving]
  - Constipation [Not Recovered/Not Resolved]

NARRATIVE: CASE EVENT DATE: 20240528
